FAERS Safety Report 8953557 (Version 1)
Quarter: 2012Q4

REPORT INFORMATION
  Report Type: 
  Country: US (occurrence: US)
  Receive Date: 20121206
  Receipt Date: 20121206
  Transmission Date: 20130627
  Serious: No
  Sender: FDA-Public Use
  Company Number: US-PFIZER INC-2012303229

PATIENT
  Age: 50 Year
  Sex: Female

DRUGS (7)
  1. SUTENT [Suspect]
     Indication: CARCINOMA KIDNEY
     Dosage: 50 mg, UNK
     Dates: start: 20121106
  2. BENADRYL [Concomitant]
     Dosage: UNK
  3. CALCIUM CARBONATE [Concomitant]
     Dosage: UNK
  4. FENTANYL [Concomitant]
     Dosage: UNK
  5. ACETAMINOPHEN W/OXYCODONE [Concomitant]
  6. PREDNISONE [Concomitant]
     Dosage: UNK
  7. TAGAMET HB [Concomitant]
     Dosage: UNK

REACTIONS (3)
  - Vomiting [Unknown]
  - Diarrhoea [Unknown]
  - Constipation [Unknown]
